FAERS Safety Report 12307712 (Version 2)
Quarter: 2016Q2

REPORT INFORMATION
  Report Type: Spontaneous
  Country: US (occurrence: US)
  Receive Date: 20160426
  Receipt Date: 20160516
  Transmission Date: 20160815
  Serious: No
  Sender: FDA-Public Use
  Company Number: US-BAYER-2016-079417

PATIENT
  Age: 82 Year
  Sex: Male
  Weight: 73.47 kg

DRUGS (1)
  1. CORICIDIN HBP COLD AND FLU [Suspect]
     Active Substance: ACETAMINOPHEN\CHLORPHENIRAMINE MALEATE
     Indication: SEASONAL ALLERGY
     Dosage: 1 DF, PRN
     Route: 048

REACTIONS (1)
  - Product use issue [None]
